FAERS Safety Report 4368948-4 (Version None)
Quarter: 2004Q2

REPORT INFORMATION
  Report Type: 
  Country: None (occurrence: None)
  Receive Date: 20040527
  Receipt Date: 20040506
  Transmission Date: 20050107
  Serious: Yes (Death, Hospitalization, Other)
  Sender: FDA-Public Use
  Company Number: USA040566845

PATIENT
  Age: 77 Year
  Sex: Female

DRUGS (2)
  1. FORTEO [Suspect]
     Indication: OSTEOPOROSIS
     Dates: start: 20030101
  2. ANTIBIOTICS [Concomitant]

REACTIONS (7)
  - BLOOD DISORDER [None]
  - CARDIAC FAILURE [None]
  - DIALYSIS [None]
  - GASTROINTESTINAL INFECTION [None]
  - INFECTION [None]
  - LUNG INFECTION [None]
  - MULTI-ORGAN FAILURE [None]
